FAERS Safety Report 23480975 (Version 1)
Quarter: 2024Q1

REPORT INFORMATION
  Report Type: Spontaneous
  Country: US (occurrence: US)
  Receive Date: 20240205
  Receipt Date: 20240205
  Transmission Date: 20240410
  Serious: Yes (Hospitalization, Other)
  Sender: FDA-Public Use
  Company Number: US-BAYER-2024A015545

PATIENT
  Age: 61 Year
  Sex: Female

DRUGS (13)
  1. ADEMPAS [Suspect]
     Active Substance: RIOCIGUAT
     Indication: Pulmonary hypertension
     Dosage: UNK
  2. ADEMPAS [Suspect]
     Active Substance: RIOCIGUAT
     Indication: Pulmonary hypertension
     Dosage: 2.5 MG, TID
     Route: 048
     Dates: start: 20230131
  3. WARFARIN [Concomitant]
     Active Substance: WARFARIN
  4. ALBUTEROL SULFATE [Concomitant]
     Active Substance: ALBUTEROL SULFATE
  5. FLONASE [Concomitant]
     Active Substance: FLUTICASONE PROPIONATE
  6. METHOCARBAMOL [Concomitant]
     Active Substance: METHOCARBAMOL
  7. ATORVASTATIN [Concomitant]
     Active Substance: ATORVASTATIN
  8. NORCO [Concomitant]
     Active Substance: ACETAMINOPHEN\HYDROCODONE BITARTRATE
  9. COLACE [Concomitant]
     Active Substance: DOCUSATE SODIUM
  10. RETIN-A [Concomitant]
     Active Substance: TRETINOIN
  11. TEMOVATE [Concomitant]
     Active Substance: CLOBETASOL PROPIONATE
  12. LIDEX [Concomitant]
     Active Substance: FLUOCINONIDE
  13. NIZORAL [Concomitant]
     Active Substance: KETOCONAZOLE

REACTIONS (4)
  - Neck pain [Recovering/Resolving]
  - Back pain [Recovering/Resolving]
  - Tinnitus [Recovering/Resolving]
  - Road traffic accident [None]

NARRATIVE: CASE EVENT DATE: 20230101
